FAERS Safety Report 11152838 (Version 1)
Quarter: 2015Q2

REPORT INFORMATION
  Report Type: Spontaneous
  Country: US (occurrence: US)
  Receive Date: 20150601
  Receipt Date: 20150601
  Transmission Date: 20150821
  Serious: Yes (Life-Threatening, Hospitalization, Other)
  Sender: FDA-Public Use
  Company Number: US-MYLANLABS-2015M1017989

PATIENT

DRUGS (2)
  1. NAPROXEN. [Suspect]
     Active Substance: NAPROXEN
     Dosage: 150 NAPROXEN 220MG TABLETS INGESTED
     Route: 048
  2. IBUPROFEN. [Suspect]
     Active Substance: IBUPROFEN
     Dosage: 50 IBUPROFEN 200MG TABLETS
     Route: 048

REACTIONS (5)
  - Metabolic acidosis [Recovered/Resolved]
  - Vomiting [Unknown]
  - Mental status changes [Recovered/Resolved]
  - Adrenal insufficiency [Recovered/Resolved]
  - Intentional overdose [Recovered/Resolved]
